FAERS Safety Report 7414789-0 (Version None)
Quarter: 2011Q2

REPORT INFORMATION
  Report Type: 
  Country: None (occurrence: None)
  Receive Date: 20110414
  Receipt Date: 20110407
  Transmission Date: 20111010
  Serious: Yes (Other)
  Sender: FDA-Public Use
  Company Number: PL-PFIZER INC-2011077709

PATIENT
  Age: 17 Year
  Sex: Female

DRUGS (6)
  1. ANTI-THYMOCYTE GLOBULIN NOS [Suspect]
     Dosage: 3.75 MG/KG, UNK
     Route: 042
     Dates: start: 20060201
  2. LEVONORGESTREL + ETHINYL ESTRADIOL [Suspect]
  3. CYCLOSPORINE [Suspect]
     Dosage: 5 MG/KG, BD
     Route: 048
     Dates: start: 20060201
  4. METHYLPREDNISOLONE [Suspect]
     Dosage: 1 MG/KG, UNK
     Route: 042
  5. METHYLPREDNISOLONE [Suspect]
     Dosage: 0.5 MG/KG, UNK
     Route: 042
  6. METHYLPREDNISOLONE [Suspect]
     Dosage: 2 MG/KG, UNK
     Route: 042
     Dates: start: 20060201

REACTIONS (3)
  - FIBROADENOMA OF BREAST [None]
  - OSTEONECROSIS [None]
  - DRUG INEFFECTIVE [None]
